FAERS Safety Report 13563826 (Version 2)
Quarter: 2017Q2

REPORT INFORMATION
  Report Type: Spontaneous
  Country: US (occurrence: US)
  Receive Date: 20170519
  Receipt Date: 20170629
  Transmission Date: 20170830
  Serious: Yes (Hospitalization)
  Sender: FDA-Public Use
  Company Number: US-JNJFOC-20170510915

PATIENT
  Age: 46 Year
  Sex: Female
  Weight: 113.4 kg

DRUGS (3)
  1. RISPERDAL [Suspect]
     Active Substance: RISPERIDONE
     Indication: SCHIZOAFFECTIVE DISORDER
     Route: 048
     Dates: start: 201705, end: 201705
  2. INVEGA SUSTENNA [Concomitant]
     Active Substance: PALIPERIDONE PALMITATE
     Indication: SCHIZOAFFECTIVE DISORDER
     Route: 065
  3. HALDOL [Suspect]
     Active Substance: HALOPERIDOL
     Indication: SCHIZOAFFECTIVE DISORDER
     Route: 030
     Dates: end: 201705

REACTIONS (9)
  - Psychomotor hyperactivity [Not Recovered/Not Resolved]
  - Aggression [Recovered/Resolved]
  - Mania [Not Recovered/Not Resolved]
  - Impatience [Not Recovered/Not Resolved]
  - Paranoia [Recovered/Resolved]
  - Treatment noncompliance [Unknown]
  - Depression [Recovered/Resolved]
  - Insomnia [Not Recovered/Not Resolved]
  - Incorrect dose administered [Unknown]

NARRATIVE: CASE EVENT DATE: 201703
